FAERS Safety Report 13755651 (Version 2)
Quarter: 2017Q3

REPORT INFORMATION
  Report Type: Report from Study
  Country: US (occurrence: US)
  Receive Date: 20170714
  Receipt Date: 20170907
  Transmission Date: 20171127
  Serious: Yes (Other)
  Sender: FDA-Public Use
  Company Number: US-PFIZER INC-2016359888

PATIENT
  Age: 60 Year
  Sex: Female

DRUGS (2)
  1. BOSULIF [Suspect]
     Active Substance: BOSUTINIB MONOHYDRATE
     Indication: CHRONIC MYELOID LEUKAEMIA
     Dosage: 500 MG, 1X/DAY
     Route: 048
     Dates: start: 201609
  2. BOSULIF [Suspect]
     Active Substance: BOSUTINIB MONOHYDRATE
     Dosage: 500 MG, DAILY (5 DF DAILY/STRENGTH OF 100 MG, 5 TABLETS QD)

REACTIONS (10)
  - Decreased appetite [Unknown]
  - Paraesthesia [Unknown]
  - Diarrhoea [Unknown]
  - Rash [Unknown]
  - Nausea [Unknown]
  - Headache [Unknown]
  - Fatigue [Unknown]
  - Ageusia [Unknown]
  - Skin discolouration [Unknown]
  - Pruritus [Unknown]

NARRATIVE: CASE EVENT DATE: 2017
